FAERS Safety Report 15632921 (Version 1)
Quarter: 2018Q4

REPORT INFORMATION
  Report Type: Spontaneous
  Country: US (occurrence: US)
  Receive Date: 20181119
  Receipt Date: 20181119
  Transmission Date: 20190205
  Serious: No
  Sender: FDA-Public Use
  Company Number: US-CELGENEUS-USA-20181103401

PATIENT
  Age: 59 Year
  Sex: Female

DRUGS (2)
  1. METFORMINE [Concomitant]
     Active Substance: METFORMIN HYDROCHLORIDE
     Indication: PRODUCT USED FOR UNKNOWN INDICATION
     Route: 065
  2. OTEZLA [Suspect]
     Active Substance: APREMILAST
     Indication: PSORIASIS
     Dosage: 40 MILLIGRAM STARTER PACK
     Route: 048
     Dates: start: 20180904

REACTIONS (3)
  - Blood glucose increased [Unknown]
  - Tremor [Unknown]
  - Agitation [Unknown]

NARRATIVE: CASE EVENT DATE: 20181108
